FAERS Safety Report 5489544-1 (Version None)
Quarter: 2007Q4

REPORT INFORMATION
  Report Type: 
  Country: None (occurrence: None)
  Receive Date: 20071016
  Receipt Date: 20071016
  Transmission Date: 20080405
  Serious: Yes (Death)
  Sender: FDA-Public Use
  Company Number: None

PATIENT
  Age: 60 Year
  Sex: Male
  Weight: 112 kg

DRUGS (1)
  1. AVASTIN [Suspect]
     Indication: ACUTE MYELOID LEUKAEMIA
     Dosage: 1680 MG EVERY 3 WEEKS IV
     Route: 042
     Dates: start: 20060327, end: 20060910

REACTIONS (29)
  - ACUTE MYOCARDIAL INFARCTION [None]
  - ADRENAL ADENOMA [None]
  - CARDIO-RESPIRATORY ARREST [None]
  - CARDIOMEGALY [None]
  - CORONARY ARTERY THROMBOSIS [None]
  - DYSPNOEA [None]
  - HEPATIC STEATOSIS [None]
  - HYPOVENTILATION [None]
  - INFARCTION [None]
  - LEUKAEMIA RECURRENT [None]
  - LEUKOCYTOSIS [None]
  - METASTASES TO ADRENALS [None]
  - METASTASES TO GASTROINTESTINAL TRACT [None]
  - METASTASES TO HEART [None]
  - METASTASES TO KIDNEY [None]
  - METASTASES TO LIVER [None]
  - METASTASES TO LUNG [None]
  - METASTASES TO SPLEEN [None]
  - MUSCULOSKELETAL CHEST PAIN [None]
  - MYOCARDIAL INFARCTION [None]
  - PERITONEAL DISORDER [None]
  - PERITONEAL HAEMORRHAGE [None]
  - PUPIL FIXED [None]
  - RENAL VEIN EMBOLISM [None]
  - SMALL INTESTINAL HAEMORRHAGE [None]
  - SPLENIC NECROSIS [None]
  - SPLENIC RUPTURE [None]
  - SPLENOMEGALY [None]
  - UNRESPONSIVE TO STIMULI [None]
